FAERS Safety Report 14390556 (Version 2)
Quarter: 2018Q1

REPORT INFORMATION
  Report Type: Report from Study
  Country: None (occurrence: DE)
  Receive Date: 20180116
  Receipt Date: 20180123
  Transmission Date: 20180509
  Serious: Yes (Hospitalization)
  Sender: FDA-Public Use
  Company Number: DE-ABBVIE-18K-062-2223162-00

PATIENT
  Sex: Male

DRUGS (2)
  1. DUODOPA [Suspect]
     Active Substance: CARBIDOPA\LEVODOPA
     Indication: PARKINSON^S DISEASE
     Dosage: MD 7.0 ML; ??CRD1: 6.4 ML/H, CRD2: 6.6 ML/H, CRN: 3.1 ML/H, ??ED 2.5 ML
     Route: 050
     Dates: start: 20140715, end: 201801
  2. DUODOPA [Suspect]
     Active Substance: CARBIDOPA\LEVODOPA
     Dosage: MD 7.0 ML;?CRD1: 6.4 ML/H, CRD2: 6.6 ML/H, CRD3:6.8ML/H?ED 2.5 ML
     Route: 050
     Dates: start: 201801

REACTIONS (2)
  - Basal cell carcinoma [Unknown]
  - Hallucination [Not Recovered/Not Resolved]
